FAERS Safety Report 9224952 (Version 1)
Quarter: 2013Q2

REPORT INFORMATION
  Report Type: Spontaneous
  Country: GB (occurrence: GB)
  Receive Date: 20130411
  Receipt Date: 20130411
  Transmission Date: 20140414
  Serious: Yes (Other)
  Sender: FDA-Public Use
  Company Number: GB-PFIZER INC-2013108503

PATIENT
  Age: 78 Year
  Sex: Male

DRUGS (3)
  1. RIFAMPICIN [Suspect]
     Indication: ENDOCARDITIS
     Dosage: UNK
  2. VANCOMYCIN HCL [Suspect]
     Indication: ENDOCARDITIS
     Dosage: UNK
  3. ACETYLSALICYLIC ACID [Concomitant]
     Dosage: UNK

REACTIONS (5)
  - Melaena [Recovered/Resolved]
  - Vitamin K deficiency [Recovered/Resolved]
  - Anaemia [Recovered/Resolved]
  - Coagulopathy [None]
  - International normalised ratio increased [None]
